FAERS Safety Report 25806861 (Version 1)
Quarter: 2025Q3

REPORT INFORMATION
  Report Type: Spontaneous
  Country: CA (occurrence: CA)
  Receive Date: 20250916
  Receipt Date: 20250916
  Transmission Date: 20251020
  Serious: Yes (Other)
  Sender: TEVA
  Company Number: CA-TEVA-VS-3372157

PATIENT
  Age: 74 Year
  Sex: Female
  Weight: 63 kg

DRUGS (6)
  1. PACLITAXEL [Suspect]
     Active Substance: PACLITAXEL
     Indication: Neoplasm malignant
     Dosage: PACLITAXEL INJECTION USP, DOSE FORM: SOLUTION INTRAVENOUS
     Route: 042
  2. KEYTRUDA [Concomitant]
     Active Substance: PEMBROLIZUMAB
     Indication: Product used for unknown indication
  3. CETIRIZINE [Concomitant]
     Active Substance: CETIRIZINE HYDROCHLORIDE
     Indication: Product used for unknown indication
     Route: 065
  4. DEXAMETHASONE [Concomitant]
     Active Substance: DEXAMETHASONE
     Indication: Product used for unknown indication
     Route: 065
  5. ONDANSETRON [Concomitant]
     Active Substance: ONDANSETRON
     Indication: Product used for unknown indication
  6. APREPITANT [Concomitant]
     Active Substance: APREPITANT
     Indication: Product used for unknown indication

REACTIONS (6)
  - Depressed level of consciousness [Recovered/Resolved]
  - Dizziness [Recovered/Resolved]
  - Back pain [Recovered/Resolved]
  - Flushing [Recovered/Resolved]
  - Defaecation urgency [Recovered/Resolved]
  - Feeling hot [Recovered/Resolved]
